FAERS Safety Report 6816227-5 (Version None)
Quarter: 2010Q3

REPORT INFORMATION
  Report Type: 
  Country: None (occurrence: None)
  Receive Date: 20100701
  Receipt Date: 20100701
  Transmission Date: 20110219
  Serious: Yes (Other)
  Sender: FDA-Public Use
  Company Number: None

PATIENT
  Age: 60 Year
  Sex: Male
  Weight: 104.3273 kg

DRUGS (1)
  1. ZICAM ZINCUM GLUCONICUM 2X ZICAM, LLC. [Suspect]
     Indication: NASOPHARYNGITIS
     Dosage: 1 DROP PER NASAL AS NEEDED NASAL
     Route: 048
     Dates: start: 20081101, end: 20090401

REACTIONS (3)
  - BONE DENSITY DECREASED [None]
  - ORAL DISORDER [None]
  - SINUS DISORDER [None]
